FAERS Safety Report 12375731 (Version 1)
Quarter: 2016Q2

REPORT INFORMATION
  Report Type: Spontaneous
  Country: US (occurrence: US)
  Receive Date: 20160517
  Receipt Date: 20160517
  Transmission Date: 20160815
  Serious: No
  Sender: FDA-Public Use
  Company Number: US-BAYER-2016-089283

PATIENT
  Sex: Female

DRUGS (1)
  1. MIRENA [Suspect]
     Active Substance: LEVONORGESTREL
     Dosage: 20 MCG/24HR, CONT
     Route: 015
     Dates: start: 20160506

REACTIONS (6)
  - Anger [None]
  - Depressed mood [None]
  - Device malfunction [None]
  - Feeling abnormal [None]
  - Crying [None]
  - Procedural pain [None]

NARRATIVE: CASE EVENT DATE: 201605
